FAERS Safety Report 5753077-5 (Version None)
Quarter: 2008Q2

REPORT INFORMATION
  Report Type: 
  Country: None (occurrence: None)
  Receive Date: 20080527
  Receipt Date: 20080510
  Transmission Date: 20081010
  Serious: Yes (Death)
  Sender: FDA-Public Use
  Company Number: 2008-01520

PATIENT
  Sex: Male

DRUGS (2)
  1. VELCADE [Suspect]
     Indication: MULTIPLE MYELOMA
     Dosage: 1.3 MG/M2, INTRAVENOUS
     Route: 042
     Dates: start: 20080421, end: 20080424
  2. DEXAMETHASONE TAB [Concomitant]

REACTIONS (4)
  - CONDITION AGGRAVATED [None]
  - DISEASE PROGRESSION [None]
  - HYPOTENSION [None]
  - SHOCK [None]
